FAERS Safety Report 8721273 (Version 2)
Quarter: 2013Q1

REPORT INFORMATION
  Report Type: Spontaneous
  Country: BR (occurrence: BR)
  Receive Date: 20120813
  Receipt Date: 20130222
  Transmission Date: 20140127
  Serious: Yes (Hospitalization, Other)
  Sender: FDA-Public Use
  Company Number: PHHY2012BR060071

PATIENT
  Age: 78 Year
  Sex: Female

DRUGS (9)
  1. HIGROTON [Suspect]
     Indication: HYPERTENSION
     Dosage: 25 MG, QD
     Route: 048
  2. OMEPRAZOLE [Concomitant]
     Indication: GASTRIC DISORDER
     Dosage: 2 DF, (20 MG) DAILY
  3. TRAMAL [Concomitant]
     Indication: VARICOSE ULCERATION
     Dosage: 4 DF, (50 MG) DAILY
     Route: 048
     Dates: start: 2008
  4. NEURONTIN [Concomitant]
     Indication: DIABETIC NEUROPATHY
     Dosage: 3 DF, (300 MG) DAILY
     Route: 048
     Dates: start: 2003
  5. DAFLON [Concomitant]
     Indication: CARDIOVASCULAR DISORDER
     Dosage: 3 DF, (500 MG) DAILY
     Route: 048
     Dates: end: 201210
  6. NORVASC [Concomitant]
     Indication: ARRHYTHMIA
     Dosage: 1 DF, (5 MG) DAILY
     Route: 048
     Dates: start: 2003
  7. NORVASC [Concomitant]
     Dosage: UNK UKN, QD
  8. INSULIN LANTUS [Concomitant]
     Indication: DIABETES MELLITUS MANAGEMENT
     Dosage: 20 IU, DAILY
     Route: 058
     Dates: start: 201203
  9. SILVER SULFADIAZINE [Concomitant]
     Indication: VARICOSE ULCERATION
     Dosage: 2 DF, (2 TUBES)
     Route: 061
     Dates: end: 201210

REACTIONS (6)
  - Localised infection [Recovered/Resolved]
  - Osteoarthritis [Not Recovered/Not Resolved]
  - Arthralgia [Recovering/Resolving]
  - Diabetic neuropathy [Recovering/Resolving]
  - Varicose ulceration [Not Recovered/Not Resolved]
  - Skin ulcer [Recovering/Resolving]
